FAERS Safety Report 10017645 (Version 1)
Quarter: 2014Q1

REPORT INFORMATION
  Report Type: Spontaneous
  Country: US (occurrence: US)
  Receive Date: 20140318
  Receipt Date: 20140318
  Transmission Date: 20141002
  Serious: No
  Sender: FDA-Public Use
  Company Number: US-BRISTOL-MYERS SQUIBB COMPANY-17418369

PATIENT
  Age: 54 Year
  Sex: Male

DRUGS (3)
  1. ERBITUX [Suspect]
     Indication: COLON CANCER
  2. IRINOTECAN [Concomitant]
  3. 5-FLUOROURACIL [Concomitant]

REACTIONS (1)
  - Rash [Unknown]
